FAERS Safety Report 8403079-5 (Version None)
Quarter: 2012Q2

REPORT INFORMATION
  Report Type: 
  Country: None (occurrence: None)
  Receive Date: 20120601
  Receipt Date: 20081217
  Transmission Date: 20120825
  Serious: Yes (Other)
  Sender: FDA-Public Use
  Company Number: JP-BRISTOL-MYERS SQUIBB COMPANY-14471130

PATIENT
  Sex: Male
  Weight: 3 kg

DRUGS (2)
  1. HEPARIN SODIUM [Concomitant]
  2. ABILIFY [Suspect]
     Route: 064
     Dates: start: 20070901, end: 20080624

REACTIONS (2)
  - FOETAL GROWTH RESTRICTION [None]
  - FOETAL EXPOSURE TIMING UNSPECIFIED [None]
